FAERS Safety Report 9419892 (Version 1)
Quarter: 2013Q3

REPORT INFORMATION
  Report Type: Spontaneous
  Country: US (occurrence: US)
  Receive Date: 20130725
  Receipt Date: 20130725
  Transmission Date: 20140515
  Serious: No
  Sender: FDA-Public Use
  Company Number: US-BAYER-2013-090241

PATIENT
  Age: 64 Year
  Sex: Female
  Weight: 77 kg

DRUGS (8)
  1. ALEVE TABLET [Suspect]
     Route: 048
  2. ALEVE TABLET [Suspect]
     Dosage: 4 DF, ONCE
     Route: 048
     Dates: start: 20130722, end: 20130722
  3. GLUCOPHAGE [Concomitant]
  4. GLUCOTROL [Concomitant]
  5. JANUVIA [Concomitant]
  6. DIOVAN [Concomitant]
  7. ATENOLOL [Concomitant]
  8. CRESTOR [Concomitant]

REACTIONS (1)
  - Extra dose administered [None]
